FAERS Safety Report 6414271-3 (Version None)
Quarter: 2009Q4

REPORT INFORMATION
  Report Type: 
  Country: None (occurrence: None)
  Receive Date: 20091026
  Receipt Date: 20091014
  Transmission Date: 20100525
  Serious: Yes (Hospitalization)
  Sender: FDA-Public Use
  Company Number: KR-PFIZER INC-2008156352

PATIENT
  Age: 61 Year

DRUGS (5)
  1. SUNITINIB MALATE [Suspect]
     Indication: HEPATIC NEOPLASM MALIGNANT RECURRENT
     Dosage: 37.5 MG, 1X/DAY
     Route: 048
     Dates: start: 20081104, end: 20081212
  2. ATENOLOL [Concomitant]
     Dosage: 1 TABLET
     Dates: start: 20081202
  3. VITAMIN B COMPLEX CAP [Concomitant]
     Dosage: 1 TABLET
     Dates: start: 20070222
  4. SILYMARIN [Concomitant]
     Dosage: 140 MG, 2X/DAY
     Dates: start: 20070222
  5. URSODEOXYCHOLIC ACID [Concomitant]
     Dosage: 200 MG, 2X/DAY
     Dates: start: 20070222

REACTIONS (3)
  - ASCITES [None]
  - HAEMATOMA [None]
  - PELVIC HAEMORRHAGE [None]
